FAERS Safety Report 11065975 (Version 1)
Quarter: 2015Q2

REPORT INFORMATION
  Report Type: Spontaneous
  Country: US (occurrence: None)
  Receive Date: 20150423
  Receipt Date: 20150423
  Transmission Date: 20150821
  Serious: Yes (Other)
  Sender: FDA-Public Use
  Company Number: ADR-2015-00730

PATIENT
  Age: 12 Year
  Sex: Male

DRUGS (1)
  1. LIORESAL [Suspect]
     Active Substance: BACLOFEN
     Indication: MUSCLE SPASTICITY

REACTIONS (7)
  - Drug withdrawal syndrome [None]
  - Hernia [None]
  - Implant site fibrosis [None]
  - Muscle spasticity [None]
  - Irritability [None]
  - Hyperhidrosis [None]
  - Agitation [None]
